FAERS Safety Report 20440263 (Version 1)
Quarter: 2022Q1

REPORT INFORMATION
  Report Type: Spontaneous
  Country: US (occurrence: US)
  Receive Date: 20220207
  Receipt Date: 20220207
  Transmission Date: 20220424
  Serious: Yes (Other)
  Sender: FDA-Public Use
  Company Number: US-PFIZER INC-202200150364

PATIENT
  Age: 49 Year
  Sex: Female

DRUGS (1)
  1. XELJANZ XR [Suspect]
     Active Substance: TOFACITINIB CITRATE
     Indication: Osteoarthritis
     Dosage: 11 MG, 1X/DAY
     Route: 048
     Dates: start: 202110

REACTIONS (6)
  - Amyloidosis [Unknown]
  - Off label use [Unknown]
  - Arthralgia [Unknown]
  - Arthropathy [Unknown]
  - Blood cholesterol increased [Unknown]
  - COVID-19 [Recovered/Resolved]

NARRATIVE: CASE EVENT DATE: 20211001
